FAERS Safety Report 25178169 (Version 1)
Quarter: 2025Q2

REPORT INFORMATION
  Report Type: Spontaneous
  Country: CA (occurrence: CA)
  Receive Date: 20250409
  Receipt Date: 20250409
  Transmission Date: 20250716
  Serious: Yes (Life-Threatening, Hospitalization, Other)
  Sender: CSL BEHRING
  Company Number: CA-BEH-2025201114

PATIENT
  Age: 60 Year
  Sex: Female
  Weight: 115 kg

DRUGS (6)
  1. PRIVIGEN [Suspect]
     Active Substance: HUMAN IMMUNOGLOBULIN G
     Indication: Immunodeficiency common variable
     Route: 042
     Dates: start: 20240711
  2. PRIVIGEN [Suspect]
     Active Substance: HUMAN IMMUNOGLOBULIN G
     Route: 042
     Dates: start: 20240711, end: 20240711
  3. PRIVIGEN [Suspect]
     Active Substance: HUMAN IMMUNOGLOBULIN G
     Route: 042
     Dates: start: 20240711, end: 20240711
  4. PRIVIGEN [Suspect]
     Active Substance: HUMAN IMMUNOGLOBULIN G
     Route: 042
     Dates: start: 20240711, end: 20240711
  5. CETIRIZINE [Concomitant]
     Active Substance: CETIRIZINE HYDROCHLORIDE
     Route: 048
  6. SODIUM CHLORIDE [Concomitant]
     Active Substance: SODIUM CHLORIDE

REACTIONS (19)
  - Hypertension [Recovered/Resolved]
  - Dyspnoea [Recovered/Resolved]
  - Erythema [Recovered/Resolved]
  - Wheezing [Recovered/Resolved]
  - Dysphonia [Recovered/Resolved]
  - Tongue disorder [Recovered/Resolved]
  - Throat tightness [Recovered/Resolved]
  - Stridor [Recovered/Resolved]
  - Wheezing [Recovered/Resolved]
  - Dysphagia [Recovered/Resolved]
  - Dysphonia [Recovered/Resolved]
  - Hypoventilation [Unknown]
  - Foreign body in throat [Unknown]
  - Rash erythematous [Unknown]
  - Obstructive airways disorder [Unknown]
  - Erythema [Unknown]
  - Tongue oedema [Unknown]
  - Cough [Unknown]
  - Transfusion reaction [Unknown]

NARRATIVE: CASE EVENT DATE: 20240711
